FAERS Safety Report 15065369 (Version 3)
Quarter: 2020Q4

REPORT INFORMATION
  Report Type: Other
  Country: RO (occurrence: RO)
  Receive Date: 20180626
  Receipt Date: 20201021
  Transmission Date: 20210113
  Serious: Yes (Other)
  Sender: FDA-Public Use
  Company Number: RO-ROCHE-2143856

PATIENT
  Sex: Female
  Weight: 40 kg

DRUGS (2)
  1. SOLU-MEDROL [Concomitant]
     Active Substance: METHYLPREDNISOLONE SODIUM SUCCINATE
     Route: 042
  2. MABTHERA [Suspect]
     Active Substance: RITUXIMAB
     Indication: RHEUMATOID ARTHRITIS
     Route: 041
     Dates: start: 201705

REACTIONS (4)
  - Weight decreased [Unknown]
  - Pharyngeal mass [Unknown]
  - Mandibular mass [Not Recovered/Not Resolved]
  - Pain [Unknown]
